FAERS Safety Report 17575777 (Version 1)
Quarter: 2020Q1

REPORT INFORMATION
  Report Type: Spontaneous
  Country: BR (occurrence: BR)
  Receive Date: 20200324
  Receipt Date: 20200324
  Transmission Date: 20200409
  Serious: Yes (Other)
  Sender: FDA-Public Use
  Company Number: BR-PFIZER INC-2020120439

PATIENT
  Sex: Female

DRUGS (1)
  1. DICOXIBE [Suspect]
     Active Substance: CELECOXIB
     Dosage: UNK

REACTIONS (5)
  - Thyroid cancer [Unknown]
  - Diarrhoea [Unknown]
  - Vomiting [Unknown]
  - Migraine [Unknown]
  - Dizziness [Unknown]
